FAERS Safety Report 4826743-3 (Version None)
Quarter: 2005Q4

REPORT INFORMATION
  Report Type: 
  Country: None (occurrence: None)
  Receive Date: 20051111
  Receipt Date: 20051111
  Transmission Date: 20060501
  Serious: Yes (Other)
  Sender: FDA-Public Use
  Company Number: None

PATIENT
  Sex: Female
  Weight: 68.0396 kg

DRUGS (5)
  1. PAROXETINE   10 MG     TEVA [Suspect]
     Indication: ANXIETY
     Dosage: 60 MG QD, { 10 MG QD Q WK   DAILY   PO  (DURATION: APPROX 3.5 YEARS)
     Route: 048
  2. PAROXETINE   10 MG     TEVA [Suspect]
     Indication: DEPRESSION
     Dosage: 60 MG QD, { 10 MG QD Q WK   DAILY   PO  (DURATION: APPROX 3.5 YEARS)
     Route: 048
  3. TRAZODONE HCL [Concomitant]
  4. EFFEXOR [Concomitant]
  5. PROZAC [Concomitant]

REACTIONS (6)
  - ACTIVITIES OF DAILY LIVING IMPAIRED [None]
  - DRUG WITHDRAWAL SYNDROME [None]
  - HYPOAESTHESIA [None]
  - IMPAIRED WORK ABILITY [None]
  - IRRITABILITY [None]
  - SUICIDAL IDEATION [None]
